FAERS Safety Report 5877394-3 (Version None)
Quarter: 2008Q3

REPORT INFORMATION
  Report Type: 
  Country: None (occurrence: None)
  Receive Date: 20080909
  Receipt Date: 20080828
  Transmission Date: 20090109
  Serious: Yes (Hospitalization)
  Sender: FDA-Public Use
  Company Number: WAES 0808USA01423

PATIENT
  Age: 69 Year
  Sex: Male
  Weight: 73.9363 kg

DRUGS (16)
  1. CAP VORINOSTAT [Suspect]
     Indication: ACUTE MYELOID LEUKAEMIA
     Dosage: 400 MG/DAILY/PO
     Route: 048
     Dates: start: 20080703, end: 20080716
  2. CAP VORINOSTAT [Suspect]
     Indication: ACUTE MYELOID LEUKAEMIA
     Dosage: 400 MG/DAILY/PO
     Route: 048
     Dates: start: 20080804, end: 20080817
  3. DECITABINE 40 MG [Suspect]
     Indication: ACUTE MYELOID LEUKAEMIA
     Dosage: 20 MG/DAILY/IV
     Route: 042
     Dates: start: 20080703, end: 20080707
  4. DECITABINE 40 MG [Suspect]
     Indication: ACUTE MYELOID LEUKAEMIA
     Dosage: 20 MG/DAILY/IV
     Route: 042
     Dates: start: 20080804, end: 20080808
  5. LEVAQUIN [Suspect]
     Indication: INFECTION PROPHYLAXIS
     Dosage: 750 MG/DAILY/PO
     Route: 048
     Dates: start: 20080715, end: 20080731
  6. DEMEROL [Concomitant]
  7. PERCOCET [Concomitant]
  8. VICODIN [Concomitant]
  9. ACETAMINOPHEN [Concomitant]
  10. ACYCLOVIR [Concomitant]
  11. ALLOPURINOL [Concomitant]
  12. FAMOTIDINE [Concomitant]
  13. FLUCONAZOLE [Concomitant]
  14. FUROSEMIDE [Concomitant]
  15. LORAZEPAM [Concomitant]
  16. SODIUM ACETATE [Concomitant]

REACTIONS (12)
  - BONE PAIN [None]
  - DEHYDRATION [None]
  - DISORIENTATION [None]
  - DIZZINESS [None]
  - DRUG INTOLERANCE [None]
  - FEBRILE NEUTROPENIA [None]
  - HYPONATRAEMIA [None]
  - MENTAL STATUS CHANGES [None]
  - MOOD ALTERED [None]
  - MUSCLE SPASMS [None]
  - THERAPEUTIC AGENT TOXICITY [None]
  - VISION BLURRED [None]
